FAERS Safety Report 10023915 (Version 2)
Quarter: 2014Q2

REPORT INFORMATION
  Report Type: Spontaneous
  Country: US (occurrence: US)
  Receive Date: 20140320
  Receipt Date: 20140411
  Transmission Date: 20141212
  Serious: Yes (Hospitalization, Other)
  Sender: FDA-Public Use
  Company Number: US-INCYTE CORPORATION-2014IN000632

PATIENT
  Sex: Male
  Weight: 70.75 kg

DRUGS (11)
  1. JAKAFI [Suspect]
     Indication: MYELOFIBROSIS
     Dosage: NOT SPECIFIED
     Route: 048
     Dates: end: 201401
  2. JAKAFI [Suspect]
     Dosage: 15 MG, BID
     Route: 048
  3. JAKAFI [Suspect]
     Dosage: 10 MG, BID
  4. PROCRIT                            /00909301/ [Concomitant]
     Dosage: 60000 UT, EVERY 1 WEEK
     Route: 058
  5. NUIRON [Concomitant]
     Dosage: UNK
     Route: 048
  6. ASPIRIN [Concomitant]
     Dosage: 81 MG, QD
     Route: 048
  7. HYDROCHLOROTHIAZIDE [Concomitant]
     Dosage: 12.5 MG, QD
     Route: 048
  8. LEVOTHYROXINE [Concomitant]
     Dosage: 25 MCG, QD IN THE MORNING
     Route: 048
  9. MULTIVITAMINS [Concomitant]
     Dosage: 1 UNK, QD
  10. VITAMIN E                          /00110501/ [Concomitant]
     Dosage: 100 UT, QD
     Route: 048
  11. HYDREA [Concomitant]

REACTIONS (3)
  - Acute myeloid leukaemia [Not Recovered/Not Resolved]
  - Diverticulitis [Unknown]
  - Splenomegaly [Unknown]
